FAERS Safety Report 23534985 (Version 1)
Quarter: 2024Q1

REPORT INFORMATION
  Report Type: Spontaneous
  Country: GB (occurrence: GB)
  Receive Date: 20240217
  Receipt Date: 20240217
  Transmission Date: 20240409
  Serious: Yes (Life-Threatening)
  Sender: FDA-Public Use
  Company Number: None

PATIENT
  Age: 31 Year
  Sex: Female

DRUGS (1)
  1. ARIPIPRAZOLE [Suspect]
     Active Substance: ARIPIPRAZOLE
     Indication: Psychotic disorder
     Dosage: VARIOUS; ;
     Route: 065
     Dates: start: 2011, end: 2023

REACTIONS (6)
  - Medication error [Unknown]
  - Gambling disorder [Not Recovered/Not Resolved]
  - Hypersexuality [Recovering/Resolving]
  - Suicidal ideation [Not Recovered/Not Resolved]
  - Illness [Not Recovered/Not Resolved]
  - Mental disorder [Unknown]

NARRATIVE: CASE EVENT DATE: 20150101
